FAERS Safety Report 4733379-1 (Version None)
Quarter: 2005Q3

REPORT INFORMATION
  Report Type: 
  Country: None (occurrence: None)
  Receive Date: 20050801
  Receipt Date: 20050315
  Transmission Date: 20060218
  Serious: Yes (Other)
  Sender: FDA-Public Use
  Company Number: 2005045735

PATIENT
  Age: 53 Year
  Sex: Female

DRUGS (3)
  1. CELEBREX [Suspect]
     Dosage: ORAL
     Route: 048
  2. BEXTRA [Suspect]
     Indication: MUSCULOSKELETAL DISORDER
     Dosage: 20 MG (10 MG 2 IN 1 D) ORAL
     Route: 048
     Dates: start: 20050314, end: 20050316
  3. DIAZEPAM [Concomitant]

REACTIONS (29)
  - ABASIA [None]
  - ABDOMINAL PAIN UPPER [None]
  - ARTHRALGIA [None]
  - BACK PAIN [None]
  - CONNECTIVE TISSUE DISORDER [None]
  - DIARRHOEA [None]
  - DIZZINESS [None]
  - DRUG EFFECT DECREASED [None]
  - DYSPEPSIA [None]
  - DYSURIA [None]
  - HOT FLUSH [None]
  - HYPERHIDROSIS [None]
  - INFLUENZA [None]
  - MALAISE [None]
  - MENORRHAGIA [None]
  - MICTURITION DISORDER [None]
  - MOBILITY DECREASED [None]
  - MUSCULOSKELETAL DISORDER [None]
  - MYOSITIS [None]
  - NAUSEA [None]
  - OESOPHAGEAL PAIN [None]
  - OLIGOMENORRHOEA [None]
  - POLYMYALGIA RHEUMATICA [None]
  - PSORIATIC ARTHROPATHY [None]
  - SHOULDER PAIN [None]
  - SOMNOLENCE [None]
  - TINNITUS [None]
  - TREMOR [None]
  - WEIGHT INCREASED [None]
